FAERS Safety Report 5776749-5 (Version None)
Quarter: 2008Q2

REPORT INFORMATION
  Report Type: 
  Country: None (occurrence: None)
  Receive Date: 20080618
  Receipt Date: 20080305
  Transmission Date: 20081010
  Serious: No
  Sender: FDA-Public Use
  Company Number: US-ASTRAZENECA-2008UW04485

PATIENT
  Sex: Female

DRUGS (6)
  1. SYMBICORT [Suspect]
     Indication: BRONCHITIS CHRONIC
     Dosage: 2 PUFFS TWICE A DAY
     Route: 055
  2. SINGULAIR [Concomitant]
  3. ELAVIL [Concomitant]
  4. CYMBALTA [Concomitant]
  5. NEURONTIN [Concomitant]
  6. ALBUTEROL [Concomitant]

REACTIONS (2)
  - CHILLS [None]
  - PYREXIA [None]
